FAERS Safety Report 9337860 (Version 6)
Quarter: 2015Q1

REPORT INFORMATION
  Report Type: Spontaneous
  Country: US (occurrence: US)
  Receive Date: 20130607
  Receipt Date: 20150129
  Transmission Date: 20150721
  Serious: Yes (Other)
  Sender: FDA-Public Use
  Company Number: US-ALLERGAN-1307986US

PATIENT
  Age: 51 Year
  Sex: Female
  Weight: 67.57 kg

DRUGS (5)
  1. BOTOX [Suspect]
     Active Substance: ONABOTULINUMTOXINA
     Indication: TORTICOLLIS
     Dosage: 200 UNITS, SINGLE
     Route: 030
     Dates: start: 20130305, end: 20130305
  2. BENICAR [Concomitant]
     Active Substance: OLMESARTAN MEDOXOMIL
     Route: 048
  3. BOTOX [Suspect]
     Active Substance: ONABOTULINUMTOXINA
     Dosage: 100 UNITS, SINGLE
     Route: 030
     Dates: start: 201203, end: 201203
  4. BOTOX [Suspect]
     Active Substance: ONABOTULINUMTOXINA
     Dosage: 100 UNITS, SINGLE
     Route: 030
     Dates: start: 201207, end: 201207
  5. CRESTOR [Concomitant]
     Active Substance: ROSUVASTATIN CALCIUM
     Route: 048

REACTIONS (30)
  - Condition aggravated [Unknown]
  - Oesophageal hypomotility [Not Recovered/Not Resolved]
  - Epistaxis [Recovered/Resolved]
  - Anaphylactic reaction [Recovered/Resolved]
  - Throat irritation [Recovered/Resolved]
  - Rash [Recovering/Resolving]
  - Throat tightness [Recovered/Resolved]
  - Dyspnoea [Recovered/Resolved]
  - Dysphagia [Not Recovered/Not Resolved]
  - Eye haemorrhage [Unknown]
  - Dysphagia [Recovered/Resolved]
  - Injection site haemorrhage [Recovered/Resolved]
  - Oesophageal injury [Unknown]
  - Spinal osteoarthritis [Unknown]
  - Blood pressure increased [Unknown]
  - Dysgeusia [Unknown]
  - Erythema [Recovered/Resolved]
  - Mania [Unknown]
  - Drug ineffective [Unknown]
  - Platelet count decreased [None]
  - Muscle spasms [Recovered/Resolved]
  - Skin discolouration [Recovered/Resolved]
  - Large intestine polyp [Recovered/Resolved]
  - Dizziness [Recovered/Resolved]
  - Muscle spasms [Recovered/Resolved]
  - Flight of ideas [Unknown]
  - Asthenia [Recovered/Resolved]
  - Oropharyngeal spasm [Recovered/Resolved]
  - Gastrooesophageal sphincter insufficiency [Unknown]
  - Alanine aminotransferase increased [None]

NARRATIVE: CASE EVENT DATE: 201207
